FAERS Safety Report 7548843-X (Version None)
Quarter: 2011Q2

REPORT INFORMATION
  Report Type: 
  Country: None (occurrence: None)
  Receive Date: 20110615
  Receipt Date: 20110607
  Transmission Date: 20111010
  Serious: Yes (Other)
  Sender: FDA-Public Use
  Company Number: HU-PFIZER INC-2011124548

PATIENT
  Age: 67 Year
  Sex: Female
  Weight: 69 kg

DRUGS (3)
  1. ACTRAPID [Concomitant]
     Dosage: 300 MG BY DAY
     Dates: start: 19880101
  2. INSULATARD [Concomitant]
     Dosage: IN THE EVENING
     Dates: start: 19880101
  3. XALATAN [Suspect]
     Dosage: 0.05 MG, 1X/DAY
     Dates: start: 20100201

REACTIONS (1)
  - INTRAOCULAR PRESSURE INCREASED [None]
